FAERS Safety Report 5928541-6 (Version None)
Quarter: 2008Q4

REPORT INFORMATION
  Report Type: 
  Country: None (occurrence: None)
  Receive Date: 20081023
  Receipt Date: 20081017
  Transmission Date: 20090506
  Serious: Yes (Hospitalization)
  Sender: FDA-Public Use
  Company Number: SE-WYE-G02376808

PATIENT
  Sex: Female

DRUGS (12)
  1. VENLAFAXINE HYDROCHLORIDE [Suspect]
     Indication: DEPRESSION
     Dates: start: 20021120, end: 20021121
  2. DIAMOX #1 [Concomitant]
     Dosage: 250 MG, DOSE FREQUENCY NOT SPECIFIED
     Route: 048
  3. IMPUGAN [Concomitant]
     Dosage: 40 MG, DOSE FREQUENCY UNKNOWN
     Route: 048
  4. FENANTOIN [Concomitant]
     Dosage: 100 MG, DOSE FREQUENCY UNKNOWN
     Route: 048
  5. TRIATEC [Suspect]
     Route: 048
  6. ALDACTONE [Concomitant]
     Dosage: 100 MG, DOSE FREQUENCY UNKNOWN
  7. BRICANYL [Concomitant]
  8. PULMICORT [Concomitant]
  9. ACETYLCYSTEINE [Concomitant]
  10. OXIS TURBUHALER [Concomitant]
  11. TRAMADOL HCL [Concomitant]
  12. ORUDIS [Concomitant]
     Dosage: 50 MG, DOSE FREQUENCY UNKNOWN

REACTIONS (1)
  - ANGIOEDEMA [None]
